FAERS Safety Report 7980217-X (Version None)
Quarter: 2011Q4

REPORT INFORMATION
  Report Type: 
  Country: None (occurrence: None)
  Receive Date: 20111212
  Receipt Date: 20111201
  Transmission Date: 20120403
  Serious: Yes (Hospitalization, Other)
  Sender: FDA-Public Use
  Company Number: AUR-APL-2011-06073

PATIENT
  Age: 7 Year
  Sex: Female

DRUGS (1)
  1. PAROXETINE HCL [Suspect]
     Indication: GENERALISED ANXIETY DISORDER
     Dates: start: 20111025, end: 20111105

REACTIONS (15)
  - ANXIETY [None]
  - DIARRHOEA [None]
  - DYSPNOEA [None]
  - APNOEA [None]
  - CYSTITIS [None]
  - MYALGIA [None]
  - MUSCLE RIGIDITY [None]
  - ASPERGER'S DISORDER [None]
  - ABNORMAL BEHAVIOUR [None]
  - ABDOMINAL PAIN UPPER [None]
  - CONVULSION [None]
  - AGGRESSION [None]
  - PRODUCT QUALITY ISSUE [None]
  - STARING [None]
  - CRYING [None]
